FAERS Safety Report 8396940-1 (Version None)
Quarter: 2012Q2

REPORT INFORMATION
  Report Type: 
  Country: None (occurrence: None)
  Receive Date: 20120530
  Receipt Date: 20120523
  Transmission Date: 20120825
  Serious: No
  Sender: FDA-Public Use
  Company Number: US-PFIZER INC-2012126044

PATIENT

DRUGS (1)
  1. TOVIAZ [Suspect]
     Dosage: 8 MG, 2X/DAY

REACTIONS (1)
  - DRUG INEFFECTIVE [None]
